FAERS Safety Report 4788475-X (Version None)
Quarter: 2005Q4

REPORT INFORMATION
  Report Type: 
  Country: None (occurrence: None)
  Receive Date: 20051005
  Receipt Date: 20051005
  Transmission Date: 20060501
  Serious: No
  Sender: FDA-Public Use
  Company Number: None

PATIENT
  Sex: Female
  Weight: 43.2 kg

DRUGS (1)
  1. PHENYTOIN [Suspect]
     Indication: CONVULSION
     Dosage: 75 MG Q8H IV
     Route: 042

REACTIONS (8)
  - AGITATION [None]
  - CONFUSIONAL STATE [None]
  - CONVULSION [None]
  - DRUG LEVEL DECREASED [None]
  - LOSS OF CONSCIOUSNESS [None]
  - MIOSIS [None]
  - MOANING [None]
  - PUPIL FIXED [None]
